FAERS Safety Report 12543476 (Version 1)
Quarter: 2016Q3

REPORT INFORMATION
  Report Type: Spontaneous
  Country: US (occurrence: US)
  Receive Date: 20160711
  Receipt Date: 20160711
  Transmission Date: 20161109
  Serious: No
  Sender: FDA-Public Use
  Company Number: US-TEVA-656621USA

PATIENT
  Sex: Female
  Weight: 101.24 kg

DRUGS (1)
  1. VENLAFAXINE [Suspect]
     Active Substance: VENLAFAXINE HYDROCHLORIDE
     Route: 065

REACTIONS (4)
  - Gait disturbance [Unknown]
  - Social avoidant behaviour [Unknown]
  - Gout [Unknown]
  - Swelling [Unknown]
